FAERS Safety Report 18808942 (Version 1)
Quarter: 2021Q1

REPORT INFORMATION
  Report Type: Spontaneous
  Country: FR (occurrence: FR)
  Receive Date: 20210129
  Receipt Date: 20210129
  Transmission Date: 20210419
  Serious: Yes (Other)
  Sender: FDA-Public Use
  Company Number: FR-MYLANLABS-2021M1004532

PATIENT
  Age: 91 Year
  Sex: Female

DRUGS (2)
  1. NEO MERCAZOLE [Suspect]
     Active Substance: CARBIMAZOLE
     Indication: HYPERTHYROIDISM
     Dosage: 5 MILLIGRAM, QD
     Route: 048
     Dates: start: 20200929, end: 20201019
  2. LINEZOLID. [Suspect]
     Active Substance: LINEZOLID
     Indication: INFECTION
     Dosage: UNK
     Route: 048
     Dates: start: 20200929, end: 20201023

REACTIONS (3)
  - Thrombocytopenia [Recovered/Resolved]
  - Asthenia [Recovered/Resolved]
  - Lipase increased [Recovering/Resolving]

NARRATIVE: CASE EVENT DATE: 202010
